FAERS Safety Report 16599370 (Version 1)
Quarter: 2019Q3

REPORT INFORMATION
  Report Type: Spontaneous
  Country: FR (occurrence: FR)
  Receive Date: 20190719
  Receipt Date: 20190719
  Transmission Date: 20191004
  Serious: Yes (Other)
  Sender: FDA-Public Use
  Company Number: FR-AMREGENT-20191501

PATIENT
  Age: 24 Year
  Sex: Female
  Weight: 105 kg

DRUGS (1)
  1. VENOFER [Suspect]
     Active Substance: IRON SUCROSE
     Dosage: 300 MG, 1 TOTAL
     Route: 042
     Dates: start: 20190620, end: 20190620

REACTIONS (3)
  - Cough [Unknown]
  - Throat irritation [Unknown]
  - Hot flush [Unknown]

NARRATIVE: CASE EVENT DATE: 20190621
